FAERS Safety Report 5424550-4 (Version None)
Quarter: 2007Q3

REPORT INFORMATION
  Report Type: 
  Country: None (occurrence: None)
  Receive Date: 20070822
  Receipt Date: 20070803
  Transmission Date: 20080115
  Serious: Yes (Other)
  Sender: FDA-Public Use
  Company Number: ENTC2007-0209

PATIENT
  Age: 62 Year
  Sex: Female

DRUGS (2)
  1. STALEVO 100 [Suspect]
     Dosage: HALF TABLET DAILY
     Route: 048
  2. EUTHYROX [Concomitant]

REACTIONS (2)
  - ABASIA [None]
  - DIZZINESS POSTURAL [None]
